FAERS Safety Report 17010215 (Version 5)
Quarter: 2020Q1

REPORT INFORMATION
  Report Type: Spontaneous
  Country: US (occurrence: US)
  Receive Date: 20191108
  Receipt Date: 20200211
  Transmission Date: 20200409
  Serious: Yes (Hospitalization, Other)
  Sender: FDA-Public Use
  Company Number: US-PFIZER INC-2019482441

PATIENT
  Age: 84 Year
  Sex: Female
  Weight: 56.24 kg

DRUGS (21)
  1. IBRANCE [Suspect]
     Active Substance: PALBOCICLIB
     Dosage: 100 MG, CYCLIC (DAILY, 21 DAYS ON, 7 DAYS OFF)
     Route: 048
     Dates: start: 2019
  2. IBRANCE [Suspect]
     Active Substance: PALBOCICLIB
     Dosage: 100 MG, DAILY
     Route: 048
     Dates: start: 201907
  3. SIMVASTATIN. [Concomitant]
     Active Substance: SIMVASTATIN
     Dosage: 20 MG, 1X/DAY(EVERY DAY AT BED TIME )
     Route: 048
     Dates: end: 20191231
  4. VITAMIN D3 [Concomitant]
     Active Substance: CHOLECALCIFEROL
     Dosage: 400 IU, DAILY
     Route: 048
     Dates: end: 20200101
  5. LETROZOLE. [Suspect]
     Active Substance: LETROZOLE
     Dosage: 2.5 MG, DAILY
     Route: 048
  6. VITAMIN C [Concomitant]
     Active Substance: ASCORBIC ACID
     Dosage: 1 G, DAILY(1,000 MG)
     Route: 048
     Dates: end: 20200101
  7. LETROZOLE. [Suspect]
     Active Substance: LETROZOLE
     Indication: BREAST CANCER RECURRENT
     Dosage: 2.5 MG, DAILY
  8. TRAMADOL. [Suspect]
     Active Substance: TRAMADOL
     Dosage: 50 MG, AS NEEDED  (50 MG 1 TAB/EVERY 6 HRS FOR STOMACH PAIN FOR 5 DAYS AS NEEDED)
     Route: 048
     Dates: end: 20200101
  9. TURMERIC [CURCUMA LONGA] [Concomitant]
     Active Substance: HERBALS\TURMERIC
     Dosage: 400 MG, DAILY
     Route: 048
     Dates: end: 20191225
  10. TRAMADOL + ACETAMINOFEN [Suspect]
     Active Substance: ACETAMINOPHEN\TRAMADOL
     Indication: ABDOMINAL PAIN UPPER
     Dosage: 50 MG, 4X/DAY(EVERY 6 HRS)
     Dates: start: 20200101
  11. TRAMADOL. [Suspect]
     Active Substance: TRAMADOL
     Indication: PAIN
     Dosage: 0.5 DF, UNK (HALF)
     Dates: start: 201911, end: 201911
  12. MULTIVITAMIN [Concomitant]
     Active Substance: VITAMINS
     Dosage: 1 DF, DAILY
     Route: 048
     Dates: end: 20200101
  13. IBRANCE [Suspect]
     Active Substance: PALBOCICLIB
     Indication: BREAST CANCER METASTATIC
     Dosage: 125 MG, CYCLIC (21 DAYS ON, 7 DAYS OFF)
     Dates: start: 201908, end: 2019
  14. IBRANCE [Suspect]
     Active Substance: PALBOCICLIB
     Dosage: 1 DF, CYCLIC (DAILY FOR 21 DAYS, STOP FOR 7 DAYS )
     Route: 048
  15. LETROZOLE. [Suspect]
     Active Substance: LETROZOLE
     Indication: BLOOD OESTROGEN INCREASED
     Dosage: 2.5 MG, DAILY
     Route: 048
     Dates: start: 201907, end: 20191225
  16. TRAMADOL. [Suspect]
     Active Substance: TRAMADOL
     Indication: ABDOMINAL PAIN UPPER
     Dosage: 1 DF, (WHOLE ONE; IN THE MORNING)
     Dates: start: 20191104
  17. LEVOFLOXACIN. [Concomitant]
     Active Substance: LEVOFLOXACIN
     Dosage: 750 MG, DAILY
     Route: 048
     Dates: end: 20200101
  18. DOCUSATE SODIUM. [Concomitant]
     Active Substance: DOCUSATE SODIUM
     Dosage: 100 MG, 1X/DAY(BED TIME)
     Route: 048
     Dates: end: 20191231
  19. PRESERVISION AREDS 2 [Concomitant]
     Active Substance: MINERALS\VITAMINS
     Dosage: 1 DF, ALTERNATE DAY(1 TAB ORAL EVERY MONDAY, WEDNESDAY AND FRIDAY)
     Route: 048
     Dates: end: 20191225
  20. LEVOTHYROXINE. [Concomitant]
     Active Substance: LEVOTHYROXINE
     Dosage: 75 UG, DAILY
     Route: 048
     Dates: end: 20191225
  21. OMEGA-3-DHA-EPA-FISH OIL [Concomitant]
     Dosage: 1 DF, DAILY
     Route: 048
     Dates: end: 20191225

REACTIONS (16)
  - Blood count abnormal [Recovered/Resolved]
  - Nausea [Not Recovered/Not Resolved]
  - Asthenia [Unknown]
  - Sepsis [Unknown]
  - Campylobacter gastroenteritis [Unknown]
  - Hypersomnia [Not Recovered/Not Resolved]
  - Hypernatraemia [Unknown]
  - Malaise [Not Recovered/Not Resolved]
  - Loss of personal independence in daily activities [Unknown]
  - Influenza [Unknown]
  - Pneumonia [Unknown]
  - Vomiting [Recovered/Resolved]
  - Epistaxis [Unknown]
  - Fatigue [Recovering/Resolving]
  - Sleep disorder [Unknown]
  - Abdominal pain upper [Recovering/Resolving]

NARRATIVE: CASE EVENT DATE: 2019
